FAERS Safety Report 10203216 (Version 1)
Quarter: 2014Q2

REPORT INFORMATION
  Report Type: Spontaneous
  Country: US (occurrence: US)
  Receive Date: 20140529
  Receipt Date: 20140529
  Transmission Date: 20141212
  Serious: No
  Sender: FDA-Public Use
  Company Number: US-BIOGENIDEC-2014BI050371

PATIENT
  Age: 49 Year
  Sex: Female

DRUGS (1)
  1. TYSABRI [Suspect]
     Indication: MULTIPLE SCLEROSIS
     Route: 042
     Dates: start: 20140417

REACTIONS (10)
  - Central nervous system lesion [Unknown]
  - Hyperhidrosis [Unknown]
  - Swelling [Unknown]
  - Pain in extremity [Unknown]
  - Forearm fracture [Unknown]
  - Fat tissue increased [Unknown]
  - Contusion [Not Recovered/Not Resolved]
  - Nausea [Unknown]
  - Hypertension [Unknown]
  - Multiple sclerosis [Unknown]
